FAERS Safety Report 6956950-5 (Version None)
Quarter: 2010Q3

REPORT INFORMATION
  Report Type: 
  Country: None (occurrence: None)
  Receive Date: 20100827
  Receipt Date: 20100827
  Transmission Date: 20110219
  Serious: Yes (Hospitalization)
  Sender: FDA-Public Use
  Company Number: None

PATIENT
  Age: 79 Year
  Sex: Female

DRUGS (1)
  1. ISOSORBIDE MONONITRATE [Suspect]
     Dosage: TAKE 1 TABLET DAILY

REACTIONS (2)
  - CHEST PAIN [None]
  - PRODUCT SUBSTITUTION ISSUE [None]
